FAERS Safety Report 15993391 (Version 5)
Quarter: 2019Q4

REPORT INFORMATION
  Report Type: Spontaneous
  Country: JP (occurrence: JP)
  Receive Date: 20190222
  Receipt Date: 20191001
  Transmission Date: 20200122
  Serious: Yes (Death, Other)
  Sender: FDA-Public Use
  Company Number: PHJP2019JP002142

PATIENT
  Age: 76 Year
  Sex: Male
  Weight: 60.4 kg

DRUGS (6)
  1. AFINITOR [Suspect]
     Active Substance: EVEROLIMUS
     Indication: RENAL CELL CARCINOMA
     Dosage: 10 MG, QD
     Route: 048
     Dates: start: 20190205, end: 20190215
  2. OPDIVO [Suspect]
     Active Substance: NIVOLUMAB
     Indication: RENAL CELL CARCINOMA
     Dosage: 195 MG, QD
     Route: 041
     Dates: start: 20180820, end: 20181015
  3. SOLU-MEDROL [Concomitant]
     Active Substance: METHYLPREDNISOLONE SODIUM SUCCINATE
     Indication: RENAL IMPAIRMENT
     Dosage: 65 MG, QD
     Route: 041
     Dates: start: 20190121
  4. MIKELAN [Concomitant]
     Active Substance: CARTEOLOL HYDROCHLORIDE
     Indication: PRODUCT USED FOR UNKNOWN INDICATION
     Dosage: UNK
     Route: 065
     Dates: end: 20190215
  5. OPDIVO [Suspect]
     Active Substance: NIVOLUMAB
     Dosage: 240 MG, QD
     Route: 041
     Dates: start: 20181030, end: 20181225
  6. SOLU-MEDROL [Concomitant]
     Active Substance: METHYLPREDNISOLONE SODIUM SUCCINATE
     Indication: DIARRHOEA
     Dosage: 1500 MG, QD
     Route: 041
     Dates: start: 20190218

REACTIONS (13)
  - Blood pressure decreased [Fatal]
  - Decreased appetite [Fatal]
  - Multiple organ dysfunction syndrome [Unknown]
  - Dehydration [Unknown]
  - Hepatic function abnormal [Fatal]
  - Thrombotic microangiopathy [Fatal]
  - Platelet count decreased [Unknown]
  - Mydriasis [Unknown]
  - Diarrhoea [Not Recovered/Not Resolved]
  - Acute kidney injury [Fatal]
  - Anal incontinence [Unknown]
  - Physical deconditioning [Unknown]
  - Cyanosis [Unknown]

NARRATIVE: CASE EVENT DATE: 20190215
